FAERS Safety Report 7466002-6 (Version None)
Quarter: 2011Q2

REPORT INFORMATION
  Report Type: 
  Country: None (occurrence: None)
  Receive Date: 20110509
  Receipt Date: 20110421
  Transmission Date: 20111010
  Serious: Yes (Other)
  Sender: FDA-Public Use
  Company Number: GB-JNJFOC-20110503321

PATIENT
  Age: 68 Year
  Sex: Male
  Weight: 72 kg

DRUGS (4)
  1. TRAMADOL HCL [Suspect]
     Indication: PAIN
     Route: 048
  2. ASPIRIN [Concomitant]
  3. OMEPRAZOLE [Concomitant]
     Route: 065
  4. FERROGRAD [Concomitant]
     Route: 065

REACTIONS (1)
  - ALOPECIA [None]
